FAERS Safety Report 25903285 (Version 1)
Quarter: 2025Q4

REPORT INFORMATION
  Report Type: Spontaneous
  Country: US (occurrence: US)
  Receive Date: 20251009
  Receipt Date: 20251009
  Transmission Date: 20260119
  Serious: No
  Sender: DAIICHI
  Company Number: US-DAIICHI SANKYO, INC.-DS-2025-167999-USAA

PATIENT
  Sex: Male

DRUGS (1)
  1. DATOPOTAMAB DERUXTECAN [Suspect]
     Active Substance: DATOPOTAMAB DERUXTECAN
     Indication: Non-small cell lung cancer
     Dosage: UNK
     Route: 042

REACTIONS (1)
  - Fatigue [Recovering/Resolving]
